FAERS Safety Report 5401965-1 (Version None)
Quarter: 2007Q3

REPORT INFORMATION
  Report Type: 
  Country: None (occurrence: None)
  Receive Date: 20070726
  Receipt Date: 20070710
  Transmission Date: 20080115
  Serious: Yes (Other)
  Sender: FDA-Public Use
  Company Number: 6035722

PATIENT
  Age: 68 Year
  Sex: Female

DRUGS (3)
  1. RANITIDINE HYDROCHLORIDE [Suspect]
     Indication: DRUG USE FOR UNKNOWN INDICATION
  2. VERACAPS SR (CAPSULE) (VERAPAIL HYDROCHLORIDE) [Concomitant]
  3. DIGOXIN TAB [Concomitant]

REACTIONS (1)
  - VENTRICULAR EXTRASYSTOLES [None]
